FAERS Safety Report 6073022-5 (Version None)
Quarter: 2009Q1

REPORT INFORMATION
  Report Type: 
  Country: None (occurrence: None)
  Receive Date: 20090209
  Receipt Date: 20090209
  Transmission Date: 20090719
  Serious: No
  Sender: FDA-Public Use
  Company Number: None

PATIENT
  Age: 37 Year
  Sex: Female
  Weight: 58.9676 kg

DRUGS (2)
  1. SARAFEM [Suspect]
     Indication: PREMENSTRUAL SYNDROME
     Dosage: 7 DAY OR 14 DAY BEFORE PERIOD ONE A DAY PO
     Route: 048
     Dates: start: 20081029, end: 20081227
  2. ZOMIG [Suspect]
     Indication: MIGRAINE
     Dosage: PRN FOR MIGRAINES ONSET PO
     Route: 048
     Dates: start: 20081029, end: 20081227

REACTIONS (8)
  - DEPRESSION [None]
  - DIARRHOEA [None]
  - HYPERHIDROSIS [None]
  - MOVEMENT DISORDER [None]
  - PALPITATIONS [None]
  - PANIC ATTACK [None]
  - SEROTONIN SYNDROME [None]
  - TACHYPHRENIA [None]
